FAERS Safety Report 24552597 (Version 1)
Quarter: 2024Q4

REPORT INFORMATION
  Report Type: Spontaneous
  Country: US (occurrence: US)
  Receive Date: 20241026
  Receipt Date: 20241026
  Transmission Date: 20250115
  Serious: Yes (Hospitalization)
  Sender: AMGEN
  Company Number: US-AMGEN-USASP2024209963

PATIENT
  Sex: Female

DRUGS (1)
  1. PROCYSBI [Suspect]
     Active Substance: CYSTEAMINE BITARTRATE
     Indication: Cystinosis
     Dosage: 1040 MILLIGRAM, BID
     Route: 048
     Dates: start: 202407

REACTIONS (4)
  - Urinary tract infection [Unknown]
  - Nausea [Unknown]
  - Diarrhoea [Unknown]
  - Dizziness [Unknown]
